FAERS Safety Report 8867220 (Version 1)
Quarter: 2012Q4

REPORT INFORMATION
  Report Type: 
  Country: US (occurrence: US)
  Receive Date: 20121025
  Receipt Date: 20121025
  Transmission Date: 20130627
  Serious: No
  Sender: FDA-Public Use
  Company Number: US-AMGEN-USASP2012015797

PATIENT
  Age: 35 Year
  Sex: Female

DRUGS (2)
  1. ENBREL [Suspect]
     Indication: RHEUMATOID ARTHRITIS
     Dosage: 50 mg, 4 times/wk
  2. METHOTREXATE [Concomitant]
     Dosage: UNK

REACTIONS (3)
  - Headache [Unknown]
  - Injection site reaction [Unknown]
  - Injection site rash [Unknown]
